FAERS Safety Report 22658453 (Version 1)
Quarter: 2023Q2

REPORT INFORMATION
  Report Type: Spontaneous
  Country: US (occurrence: None)
  Receive Date: 20230629
  Receipt Date: 20230629
  Transmission Date: 20230722
  Serious: No
  Sender: FDA-Public Use
  Company Number: None

PATIENT

DRUGS (10)
  1. KETAMINE [Suspect]
     Active Substance: KETAMINE
  2. LIDOCAINE VISCOUS [Suspect]
     Active Substance: LIDOCAINE HYDROCHLORIDE
  3. MIDAZOLAM [Suspect]
     Active Substance: MIDAZOLAM
  4. NICARDIPINE [Suspect]
     Active Substance: NICARDIPINE
  5. NITROGLYCERIN [Suspect]
     Active Substance: NITROGLYCERIN
  6. PROPOFOL [Suspect]
     Active Substance: PROPOFOL
  7. PROTAMINE [Suspect]
     Active Substance: PROTAMINE
  8. ROCURONIUM BROMIDE [Suspect]
     Active Substance: ROCURONIUM BROMIDE
  9. SUGAMMADEX [Suspect]
     Active Substance: SUGAMMADEX
  10. TRANEXAMIC ACID [Suspect]
     Active Substance: TRANEXAMIC ACID

REACTIONS (3)
  - Paralysis [None]
  - Post procedural complication [None]
  - Drug monitoring procedure incorrectly performed [None]

NARRATIVE: CASE EVENT DATE: 20220607
